FAERS Safety Report 5213137-4 (Version None)
Quarter: 2007Q1

REPORT INFORMATION
  Report Type: 
  Country: None (occurrence: None)
  Receive Date: 20070119
  Receipt Date: 20061211
  Transmission Date: 20070707
  Serious: Yes (Hospitalization)
  Sender: FDA-Public Use
  Company Number: FR-002147023-PHRM2006FR03292

PATIENT
  Age: 80 Year
  Sex: Female

DRUGS (1)
  1. AREDIA [Suspect]
     Indication: MULTIPLE MYELOMA
     Dosage: 60 MG, QMO
     Route: 042
     Dates: start: 20010101

REACTIONS (3)
  - FOCAL GLOMERULOSCLEROSIS [None]
  - MYELOMA RECURRENCE [None]
  - PROTEINURIA [None]
